FAERS Safety Report 10423043 (Version 3)
Quarter: 2014Q4

REPORT INFORMATION
  Report Type: Spontaneous
  Country: JP (occurrence: JP)
  Receive Date: 20140902
  Receipt Date: 20141226
  Transmission Date: 20150528
  Serious: Yes (Disabling, Other)
  Sender: FDA-Public Use
  Company Number: JP-AMGEN-JPNSP2014066249

PATIENT
  Age: 64 Year
  Sex: Male
  Weight: 47 kg

DRUGS (30)
  1. DECADRON [Concomitant]
     Active Substance: DEXAMETHASONE
     Indication: METASTASES TO BONE
  2. NEXIUM [Concomitant]
     Active Substance: ESOMEPRAZOLE MAGNESIUM
     Indication: METASTASES TO BONE
  3. DECADRON [Concomitant]
     Active Substance: DEXAMETHASONE
     Indication: LUNG NEOPLASM MALIGNANT
     Dosage: 0.5 MG, QD
     Route: 048
     Dates: start: 20130804
  4. CALCIUM [Concomitant]
     Active Substance: CALCIUM
     Dosage: UNK
     Route: 065
  5. CALCIUM LACTATE [Concomitant]
     Active Substance: CALCIUM LACTATE
     Indication: LUNG NEOPLASM MALIGNANT
     Dosage: 1.33 G, TID
     Route: 048
     Dates: start: 20140630, end: 20140728
  6. OXYCONTIN [Concomitant]
     Active Substance: OXYCODONE HYDROCHLORIDE
     Indication: LUNG NEOPLASM MALIGNANT
     Dosage: 40 MG, BID
     Route: 048
     Dates: start: 201107
  7. PANVITAN                           /05664201/ [Concomitant]
     Indication: LUNG NEOPLASM MALIGNANT
     Dosage: 1 G, QD
     Route: 048
     Dates: start: 201305
  8. RANMARK [Suspect]
     Active Substance: DENOSUMAB
     Indication: LUNG NEOPLASM MALIGNANT
     Dosage: 120 MG, UNK
     Route: 058
     Dates: start: 20140630
  9. URSO [Suspect]
     Active Substance: URSODIOL
     Indication: METASTASES TO BONE
  10. PROHEPARUM [Concomitant]
     Active Substance: CHOLINE BITARTRATE\CYSTEINE\INOSITOL\MAMMAL LIVER
     Indication: LUNG NEOPLASM MALIGNANT
     Dosage: UNK, TID
     Route: 048
     Dates: start: 20130709
  11. CALCIUM LACTATE [Concomitant]
     Active Substance: CALCIUM LACTATE
     Indication: METASTASES TO BONE
  12. OXINORM                            /00045603/ [Concomitant]
     Indication: LUNG NEOPLASM MALIGNANT
     Dosage: 10 MG, AS NECESSARY
     Route: 048
     Dates: start: 201107
  13. RANMARK [Suspect]
     Active Substance: DENOSUMAB
     Indication: METASTASES TO BONE
  14. CALFINA [Concomitant]
     Active Substance: ALFACALCIDOL
     Indication: METASTASES TO BONE
  15. CELECOX [Concomitant]
     Active Substance: CELECOXIB
     Indication: LUNG NEOPLASM MALIGNANT
     Dosage: 200 MG, BID
     Route: 048
     Dates: start: 20120818
  16. PANVITAN                           /07504101/ [Concomitant]
     Indication: LUNG NEOPLASM MALIGNANT
     Dosage: 1 G, QD
     Route: 048
     Dates: start: 201305
  17. PANVITAN                           /07504101/ [Concomitant]
     Indication: METASTASES TO BONE
  18. CALFINA [Concomitant]
     Active Substance: ALFACALCIDOL
     Indication: LUNG NEOPLASM MALIGNANT
     Dosage: 1 MUG, QD
     Route: 048
     Dates: start: 20140630, end: 20140728
  19. PANVITAN                           /05664201/ [Concomitant]
     Indication: METASTASES TO BONE
  20. ZOMETA [Suspect]
     Active Substance: ZOLEDRONIC ACID
     Indication: LUNG NEOPLASM MALIGNANT
     Dosage: 4 MG, QD
     Route: 058
     Dates: start: 20120518, end: 20140418
  21. URSO [Suspect]
     Active Substance: URSODIOL
     Indication: LUNG NEOPLASM MALIGNANT
     Dosage: 50 MG, TID
     Route: 048
     Dates: start: 20130709
  22. NEXIUM [Concomitant]
     Active Substance: ESOMEPRAZOLE MAGNESIUM
     Indication: LUNG NEOPLASM MALIGNANT
     Dosage: 20 MG, QD
     Route: 065
  23. FUROSEMIDE. [Concomitant]
     Active Substance: FUROSEMIDE
     Indication: LUNG NEOPLASM MALIGNANT
     Dosage: 20 MG, QD
     Route: 048
     Dates: start: 20140219
  24. FUROSEMIDE. [Concomitant]
     Active Substance: FUROSEMIDE
     Indication: METASTASES TO BONE
  25. OXYCONTIN [Concomitant]
     Active Substance: OXYCODONE HYDROCHLORIDE
     Indication: METASTASES TO BONE
  26. OXINORM                            /00045603/ [Concomitant]
     Indication: METASTASES TO BONE
  27. ZOMETA [Suspect]
     Active Substance: ZOLEDRONIC ACID
     Indication: METASTASES TO BONE
  28. CELECOX [Concomitant]
     Active Substance: CELECOXIB
     Indication: METASTASES TO BONE
  29. PROHEPARUM [Concomitant]
     Active Substance: CHOLINE BITARTRATE\CYSTEINE\INOSITOL\MAMMAL LIVER
     Indication: METASTASES TO BONE
  30. ALIMTA [Concomitant]
     Active Substance: PEMETREXED DISODIUM
     Indication: LUNG NEOPLASM MALIGNANT
     Dosage: 400 MG, QD
     Route: 041
     Dates: start: 201305, end: 20141111

REACTIONS (1)
  - Osteonecrosis of jaw [Not Recovered/Not Resolved]

NARRATIVE: CASE EVENT DATE: 201407
